FAERS Safety Report 4714927-4 (Version None)
Quarter: 2005Q3

REPORT INFORMATION
  Report Type: 
  Country: None (occurrence: None)
  Receive Date: 20050715
  Receipt Date: 20050706
  Transmission Date: 20060218
  Serious: Yes (Other)
  Sender: FDA-Public Use
  Company Number: HK-ABBOTT-05P-075-0305492-00

PATIENT
  Age: 80 Year
  Sex: Male

DRUGS (2)
  1. CLARITHROMYCIN [Suspect]
     Indication: PNEUMONIA
     Route: 048
  2. COLCHICINE [Interacting]
     Indication: GOUT
     Route: 048

REACTIONS (5)
  - DIARRHOEA [None]
  - DRUG INTERACTION [None]
  - DRUG TOXICITY [None]
  - GOUT [None]
  - PANCYTOPENIA [None]
